FAERS Safety Report 9562376 (Version 1)
Quarter: 2013Q3

REPORT INFORMATION
  Report Type: Spontaneous
  Country: US (occurrence: None)
  Receive Date: 20130926
  Receipt Date: 20130926
  Transmission Date: 20140515
  Serious: Yes (Death, Hospitalization)
  Sender: FDA-Public Use
  Company Number: None

PATIENT
  Age: 61 Year
  Sex: Male
  Weight: 96 kg

DRUGS (1)
  1. TARCEVA [Suspect]
     Dosage: DRUG WITHDRAWN.
     Dates: start: 20130801, end: 20130920

REACTIONS (8)
  - Hypotension [None]
  - Hypoxia [None]
  - Pain [None]
  - Constipation [None]
  - Nausea [None]
  - Pleural effusion [None]
  - Tracheo-oesophageal fistula [None]
  - Culture positive [None]
